FAERS Safety Report 4468693-0 (Version None)
Quarter: 2004Q4

REPORT INFORMATION
  Report Type: 
  Country: None (occurrence: None)
  Receive Date: 20041007
  Receipt Date: 20041004
  Transmission Date: 20050328
  Serious: Yes (Death)
  Sender: FDA-Public Use
  Company Number: CA-MERCK-0410CAN00079

PATIENT
  Age: 66 Year
  Sex: Male

DRUGS (12)
  1. [THERAPY UNSPECIFIED] [Concomitant]
     Route: 065
  2. [THERAPY UNSPECIFIED] [Concomitant]
     Route: 065
  3. [THERAPY UNSPECIFIED] [Concomitant]
     Route: 065
  4. ASPIRIN [Concomitant]
     Route: 065
  5. CYCLOBENZAPRINE HYDROCHLORIDE [Concomitant]
     Route: 065
  6. MEPERIDINE HYDROCHLORIDE [Concomitant]
     Indication: BACK PAIN
     Route: 065
  7. METFORMIN [Concomitant]
     Route: 065
  8. OMEPRAZOLE MAGNESIUM [Concomitant]
     Route: 065
  9. QUININE SULFATE [Concomitant]
     Route: 065
  10. RAMIPRIL [Concomitant]
     Route: 065
  11. VIOXX [Suspect]
     Route: 048
     Dates: start: 19990101, end: 20030101
  12. VIOXX [Suspect]
     Route: 048
     Dates: start: 20030101

REACTIONS (5)
  - ANGINA PECTORIS [None]
  - BLINDNESS UNILATERAL [None]
  - CEREBROVASCULAR ACCIDENT [None]
  - CHEST PAIN [None]
  - INFARCTION [None]
